FAERS Safety Report 22594334 (Version 1)
Quarter: 2023Q2

REPORT INFORMATION
  Report Type: Spontaneous
  Country: US (occurrence: US)
  Receive Date: 20230613
  Receipt Date: 20230613
  Transmission Date: 20230722
  Serious: No
  Sender: FDA-Public Use
  Company Number: US-BAYER-2023A078244

PATIENT
  Age: 66 Year
  Sex: Female

DRUGS (2)
  1. ALEVE [Suspect]
     Active Substance: NAPROXEN SODIUM
     Indication: Back pain
     Dosage: 1 DF, TAKE 2-3 TABLETS PER WEEK
     Route: 048
     Dates: start: 20230601, end: 20230601
  2. ALEVE [Suspect]
     Active Substance: NAPROXEN SODIUM
     Indication: Arthralgia

REACTIONS (1)
  - Throat irritation [Not Recovered/Not Resolved]

NARRATIVE: CASE EVENT DATE: 20230601
